FAERS Safety Report 9470014 (Version 1)
Quarter: 2013Q3

REPORT INFORMATION
  Report Type: Spontaneous
  Country: GB (occurrence: GB)
  Receive Date: 20130822
  Receipt Date: 20130822
  Transmission Date: 20140515
  Serious: Yes (Life-Threatening, Hospitalization)
  Sender: FDA-Public Use
  Company Number: GB-JNJFOC-20130811374

PATIENT
  Age: 87 Year
  Sex: Male
  Weight: 65 kg

DRUGS (9)
  1. XARELTO [Suspect]
     Indication: CEREBROVASCULAR ACCIDENT PROPHYLAXIS
     Route: 048
     Dates: start: 20130522, end: 20130627
  2. XARELTO [Suspect]
     Indication: ATRIAL FIBRILLATION
     Route: 048
     Dates: start: 20130522, end: 20130627
  3. SIMVASTATIN [Concomitant]
     Route: 048
  4. FOLIC ACID [Concomitant]
     Route: 048
  5. LANSOPRAZOLE [Concomitant]
     Route: 048
  6. TIOTROPIUM [Concomitant]
     Route: 065
  7. ALLOPURINOL [Concomitant]
     Route: 048
  8. ADALAT [Concomitant]
     Route: 048
  9. BISOPROLOL [Concomitant]
     Route: 048

REACTIONS (2)
  - Dyspnoea [Recovering/Resolving]
  - Haemoglobin decreased [Recovering/Resolving]
